FAERS Safety Report 20222839 (Version 1)
Quarter: 2021Q4

REPORT INFORMATION
  Report Type: Spontaneous
  Country: US (occurrence: None)
  Receive Date: 20211223
  Receipt Date: 20211223
  Transmission Date: 20220303
  Serious: Yes (Hospitalization)
  Sender: FDA-Public Use
  Company Number: None

PATIENT
  Sex: Female

DRUGS (14)
  1. REPATHA [Suspect]
     Active Substance: EVOLOCUMAB
     Indication: Type V hyperlipidaemia
     Dosage: FREQUENCY : EVERY OTHER WEEK;?
     Route: 058
     Dates: start: 20180104
  2. REPATHA [Suspect]
     Active Substance: EVOLOCUMAB
     Dosage: OTHER QUANTITY : 1 PEN;?FREQUENCY : EVERY OTHER WEEK;?
     Route: 058
  3. ALLOPURINOL [Concomitant]
  4. BREO ELLIPTA [Concomitant]
  5. DEXAMETHASONE [Concomitant]
     Active Substance: DEXAMETHASONE
  6. ELIQUIS [Concomitant]
     Active Substance: APIXABAN
  7. FUROSEMIDE [Concomitant]
     Active Substance: FUROSEMIDE
  8. LOSARTAN POTASSIUM [Concomitant]
     Active Substance: LOSARTAN POTASSIUM
  9. METHOCARBAMOL [Concomitant]
     Active Substance: METHOCARBAMOL
  10. PROTONIX [Concomitant]
     Active Substance: PANTOPRAZOLE SODIUM
  11. REVLIMID [Concomitant]
     Active Substance: LENALIDOMIDE
  12. SOTALOL [Concomitant]
     Active Substance: SOTALOL
  13. VALTREX [Concomitant]
     Active Substance: VALACYCLOVIR HYDROCHLORIDE
  14. VELCADE [Concomitant]
     Active Substance: BORTEZOMIB

REACTIONS (1)
  - Gallbladder disorder [None]
